FAERS Safety Report 5798988-X (Version None)
Quarter: 2008Q3

REPORT INFORMATION
  Report Type: 
  Country: None (occurrence: None)
  Receive Date: 20080702
  Receipt Date: 20080625
  Transmission Date: 20090109
  Serious: Yes (Hospitalization)
  Sender: FDA-Public Use
  Company Number: US-PFIZER INC-2008044077

PATIENT
  Sex: Female

DRUGS (21)
  1. ZOLOFT [Suspect]
  2. SERTRALINE [Suspect]
  3. CARBATROL [Suspect]
  4. KLONOPIN [Suspect]
  5. TEGRETOL [Suspect]
  6. LAMICTAL [Suspect]
  7. ZANTAC [Suspect]
  8. COLACE [Suspect]
  9. MELATONIN [Suspect]
  10. AMITRIPTYLINE HCL [Concomitant]
     Dosage: DAILY DOSE:25MG
  11. IMITREX [Concomitant]
     Dosage: DAILY DOSE:50MG
  12. TETRACYCLINE [Concomitant]
     Dosage: DAILY DOSE:500MG
  13. PROPRANOLOL [Concomitant]
     Dosage: DAILY DOSE:40MG
  14. TYLENOL W/ CODEINE NO. 3 [Concomitant]
  15. LIPITOR [Concomitant]
     Dosage: DAILY DOSE:20MG
  16. GLUCOSAMINE W/CHONDROITIN SULFATES [Concomitant]
     Dosage: DAILY DOSE:1200MG
  17. MULTI-VITAMINS [Concomitant]
  18. VITAMIN E [Concomitant]
     Dosage: DAILY DOSE:400I.U.
  19. PEPCID [Concomitant]
     Dosage: DAILY DOSE:20MG
  20. ADVIL [Concomitant]
     Dosage: DAILY DOSE:600MG
  21. FLUOXETINE [Concomitant]
     Dosage: DAILY DOSE:20MG

REACTIONS (5)
  - CONFUSIONAL STATE [None]
  - INCONTINENCE [None]
  - LETHARGY [None]
  - SOMNOLENCE [None]
  - UNRESPONSIVE TO STIMULI [None]
